FAERS Safety Report 10197806 (Version 1)
Quarter: 2014Q2

REPORT INFORMATION
  Report Type: Spontaneous
  Country: US (occurrence: US)
  Receive Date: 20140527
  Receipt Date: 20140527
  Transmission Date: 20141212
  Serious: No
  Sender: FDA-Public Use
  Company Number: US-NOVEN-13US006597

PATIENT
  Age: 11 Year
  Sex: Female

DRUGS (2)
  1. DAYTRANA [Suspect]
     Indication: ATTENTION DEFICIT/HYPERACTIVITY DISORDER
     Dosage: 20 MG, UNK
     Route: 062
     Dates: start: 20130325, end: 20130408
  2. CLONIDINE [Concomitant]
     Indication: INSOMNIA
     Dosage: 0.1 MG, UNK
     Route: 048

REACTIONS (2)
  - Tic [Unknown]
  - Drug dose omission [Recovered/Resolved]
